FAERS Safety Report 5689469-2 (Version None)
Quarter: 2008Q1

REPORT INFORMATION
  Report Type: 
  Country: None (occurrence: None)
  Receive Date: 20080331
  Receipt Date: 20080319
  Transmission Date: 20080703
  Serious: Yes (Hospitalization, Other)
  Sender: FDA-Public Use
  Company Number: US-PFIZER INC-2008025430

PATIENT
  Sex: Female

DRUGS (16)
  1. DILANTIN [Suspect]
     Indication: CONVULSION
     Dates: start: 20061223, end: 20070118
  2. DILANTIN [Suspect]
     Indication: CONVULSION
  3. PHENYTOIN [Suspect]
     Indication: CONVULSION
  4. HYDRALAZINE HCL [Concomitant]
  5. LASIX [Concomitant]
  6. NITROGLYCERIN [Concomitant]
     Route: 061
  7. PREVACID [Concomitant]
  8. REGLAN [Concomitant]
  9. LISINOPRIL [Concomitant]
  10. MULTI-VITAMINS [Concomitant]
  11. TYLENOL (CAPLET) [Concomitant]
  12. BENADRYL [Concomitant]
  13. CLONIDINE [Concomitant]
  14. LABETALOL HCL [Concomitant]
  15. ZOFRAN [Concomitant]
  16. LOPRESSOR [Concomitant]

REACTIONS (10)
  - DRUG RASH WITH EOSINOPHILIA AND SYSTEMIC SYMPTOMS [None]
  - DRY EYE [None]
  - DYSPHAGIA [None]
  - DYSPNOEA [None]
  - ENCEPHALOPATHY [None]
  - HYPERSENSITIVITY [None]
  - OEDEMA PERIPHERAL [None]
  - RENAL FAILURE ACUTE [None]
  - SCAR [None]
  - VISION BLURRED [None]
